FAERS Safety Report 23079628 (Version 6)
Quarter: 2024Q2

REPORT INFORMATION
  Report Type: Spontaneous
  Country: CA (occurrence: CA)
  Receive Date: 20231018
  Receipt Date: 20240618
  Transmission Date: 20240716
  Serious: Yes (Other)
  Sender: FDA-Public Use
  Company Number: CA-PFIZER INC-202300163468

PATIENT
  Age: 43 Year
  Sex: Female

DRUGS (3)
  1. ABRILADA [Suspect]
     Active Substance: ADALIMUMAB-AFZB
     Indication: Psoriatic arthropathy
     Dosage: 40 MG, EVERY OTHER WEEK (1X/2 WEEK)
     Route: 058
     Dates: start: 20230221
  2. ABRILADA [Suspect]
     Active Substance: ADALIMUMAB-AFZB
     Dosage: 40 MG, EVERY OTHER WEEK (1X/2 WEEK)
     Route: 058
     Dates: start: 20230418
  3. ABRILADA [Suspect]
     Active Substance: ADALIMUMAB-AFZB
     Dosage: 40 MG, EVERY OTHER WEEK (1X/2 WEEK)
     Route: 058
     Dates: start: 2023

REACTIONS (8)
  - Neoplasm malignant [Not Recovered/Not Resolved]
  - Dysphagia [Not Recovered/Not Resolved]
  - Knee operation [Not Recovered/Not Resolved]
  - Condition aggravated [Not Recovered/Not Resolved]
  - Fall [Unknown]
  - Hip fracture [Unknown]
  - Contusion [Unknown]
  - Pain [Not Recovered/Not Resolved]

NARRATIVE: CASE EVENT DATE: 20230101
